FAERS Safety Report 15244959 (Version 1)
Quarter: 2018Q3

REPORT INFORMATION
  Report Type: Spontaneous
  Country: US (occurrence: US)
  Receive Date: 20180713
  Receipt Date: 20180713
  Transmission Date: 20181010
  Serious: Yes (Hospitalization)
  Sender: FDA-Public Use
  Company Number: None

PATIENT
  Age: 80 Year
  Sex: Female

DRUGS (4)
  1. CLONIDINE. [Suspect]
     Active Substance: CLONIDINE
     Indication: HYPERTENSION
     Route: 048
     Dates: start: 20180613, end: 20180618
  2. HYDRALAZINE 25 MG [Concomitant]
     Active Substance: HYDRALAZINE HYDROCHLORIDE
  3. SYNTHROID 75 MG [Concomitant]
  4. FUROSEMIDE 40 MG [Concomitant]
     Active Substance: FUROSEMIDE

REACTIONS (2)
  - Product substitution issue [None]
  - Drug ineffective [None]

NARRATIVE: CASE EVENT DATE: 20180614
